FAERS Safety Report 6742777-6 (Version None)
Quarter: 2010Q2

REPORT INFORMATION
  Report Type: 
  Country: None (occurrence: None)
  Receive Date: 20100525
  Receipt Date: 20100514
  Transmission Date: 20101027
  Serious: No
  Sender: FDA-Public Use
  Company Number: 012010

PATIENT
  Sex: Female

DRUGS (7)
  1. KEPPRA [Suspect]
     Indication: EPILEPSY
     Dosage: 500 MG BID
     Dates: start: 20090801
  2. KEPPRA [Suspect]
     Indication: EPILEPSY
     Dosage: 250 MG QD; 500MG BID, TAKING AT THE TIME OF SAB DATED 28/AUG/2008
     Dates: end: 20090801
  3. KEPPRA [Suspect]
     Indication: EPILEPSY
     Dosage: 250 MG QD; 500MG BID, TAKING AT THE TIME OF SAB DATED 28/AUG/2008
     Dates: start: 20100101, end: 20100301
  4. FOLIC ACID [Suspect]
     Indication: PREGNANCY
     Dosage: 4 MG QD ORAL
     Route: 048
  5. PRENATAL VITAMINS /01549301/ [Concomitant]
  6. SYNTHROID [Concomitant]
  7. FISH OIL [Concomitant]

REACTIONS (5)
  - DRUG EXPOSURE DURING PREGNANCY [None]
  - DRUG LEVEL DECREASED [None]
  - INAPPROPRIATE SCHEDULE OF DRUG ADMINISTRATION [None]
  - PREGNANCY [None]
  - SUPPRESSED LACTATION [None]
